FAERS Safety Report 4593841-1 (Version None)
Quarter: 2005Q1

REPORT INFORMATION
  Report Type: 
  Country: None (occurrence: None)
  Receive Date: 20050301
  Receipt Date: 20050225
  Transmission Date: 20050727
  Serious: Yes (Death)
  Sender: FDA-Public Use
  Company Number: PHBS2005JP02931

PATIENT
  Age: 67 Year
  Sex: Male

DRUGS (7)
  1. GLEEVEC [Suspect]
     Indication: ACUTE LYMPHOCYTIC LEUKAEMIA
     Dosage: UNK, UNK
     Route: 048
     Dates: start: 20050218
  2. DAUNORUBICIN HCL [Concomitant]
     Dosage: 120 MG, UNK
     Dates: start: 20050201
  3. ENOCITABINE [Concomitant]
     Dates: start: 20050201
  4. MERCAPTOPURINE [Concomitant]
     Dates: start: 20050201
  5. PREDNISOLONE [Concomitant]
     Route: 048
  6. ANTIDIABETICS [Concomitant]
  7. DIURETICS [Concomitant]

REACTIONS (1)
  - CARDIAC FAILURE [None]
